FAERS Safety Report 22350556 (Version 2)
Quarter: 2023Q2

REPORT INFORMATION
  Report Type: Report from Study
  Country: AU (occurrence: AU)
  Receive Date: 20230522
  Receipt Date: 20230605
  Transmission Date: 20230722
  Serious: Yes (Hospitalization)
  Sender: FDA-Public Use
  Company Number: AU-002147023-NVSC2023AU113755

PATIENT
  Age: 78 Year
  Sex: Male
  Weight: 95.2 kg

DRUGS (9)
  1. PLUVICTO [Suspect]
     Active Substance: LUTETIUM LU-177 VIPIVOTIDE TETRAXETAN
     Indication: Hormone-refractory prostate cancer
     Dosage: 7.5 GBQ
     Route: 042
     Dates: start: 20230216
  2. NIVOLUMAB [Suspect]
     Active Substance: NIVOLUMAB
     Indication: Hormone-refractory prostate cancer
     Dosage: 95 MG
     Route: 042
     Dates: start: 20230215
  3. IPILIMUMAB [Suspect]
     Active Substance: IPILIMUMAB
     Indication: Hormone-refractory prostate cancer
     Dosage: 285 MG
     Route: 042
     Dates: start: 20230215
  4. DENOSUMAB [Concomitant]
     Active Substance: DENOSUMAB
     Indication: Hormone-refractory prostate cancer
     Dosage: 120 MG, Q3MO, EVERY 3 MONTHS
     Route: 058
     Dates: start: 2021
  5. ZOLADEX [Concomitant]
     Active Substance: GOSERELIN ACETATE
     Indication: Hormone-refractory prostate cancer
     Dosage: 10.8 MG, Q3MO, EVERY 3 MONTHS
     Route: 058
     Dates: start: 202111
  6. FUROSEMIDE [Concomitant]
     Active Substance: FUROSEMIDE
     Indication: Hormone-refractory prostate cancer
     Dosage: 20 MG, QD, ONCE A DAY
     Route: 048
     Dates: start: 20230215
  7. HYDROCORTISONE [Concomitant]
     Active Substance: HYDROCORTISONE
     Indication: Hormone-refractory prostate cancer
     Dosage: 20 MG, MANE
     Route: 048
     Dates: start: 20230227
  8. HYDROCORTISONE [Concomitant]
     Active Substance: HYDROCORTISONE
     Dosage: 10 MG, MIDDAY
     Route: 048
     Dates: start: 20230227
  9. HYDROCORTISONE [Concomitant]
     Active Substance: HYDROCORTISONE
     Dosage: 10 MG, AFTERNOON
     Route: 048
     Dates: start: 20230328

REACTIONS (1)
  - Syncope [Recovered/Resolved]

NARRATIVE: CASE EVENT DATE: 20230330
